FAERS Safety Report 7785909-3 (Version None)
Quarter: 2011Q3

REPORT INFORMATION
  Report Type: 
  Country: None (occurrence: None)
  Receive Date: 20110929
  Receipt Date: 20110922
  Transmission Date: 20111222
  Serious: Yes (Other)
  Sender: FDA-Public Use
  Company Number: AU-SANOFI-AVENTIS-2011SA062027

PATIENT
  Age: 58 Year
  Sex: Male

DRUGS (8)
  1. FOLIC ACID [Concomitant]
  2. ARAVA [Suspect]
     Route: 065
     Dates: start: 20110603
  3. METHOTREXATE [Concomitant]
  4. PREDNISONE [Concomitant]
  5. ACTONEL [Concomitant]
  6. NEXIUM [Concomitant]
  7. PLAQUENIL [Concomitant]
  8. CALCIUM CARBONATE [Concomitant]

REACTIONS (2)
  - DIARRHOEA [None]
  - GASTROINTESTINAL HAEMORRHAGE [None]
